FAERS Safety Report 7400703-0 (Version None)
Quarter: 2011Q2

REPORT INFORMATION
  Report Type: 
  Country: None (occurrence: None)
  Receive Date: 20110407
  Receipt Date: 20110401
  Transmission Date: 20111010
  Serious: Yes (Hospitalization)
  Sender: FDA-Public Use
  Company Number: A0899103A

PATIENT
  Age: 56 Year
  Sex: Male
  Weight: 139.1 kg

DRUGS (5)
  1. AVANDARYL [Suspect]
     Route: 048
     Dates: start: 20061001, end: 20090201
  2. METFORMIN HCL [Concomitant]
  3. ZESTORETIC [Concomitant]
  4. SYNTHROID [Concomitant]
  5. ASPIRIN [Concomitant]

REACTIONS (5)
  - CARDIOVASCULAR DISORDER [None]
  - MYOCARDIAL INFARCTION [None]
  - ISCHAEMIA [None]
  - CORONARY ARTERY DISEASE [None]
  - CORONARY ARTERIAL STENT INSERTION [None]
